FAERS Safety Report 23980791 (Version 3)
Quarter: 2024Q3

REPORT INFORMATION
  Report Type: Spontaneous
  Country: US (occurrence: US)
  Receive Date: 20240617
  Receipt Date: 20240726
  Transmission Date: 20241017
  Serious: Yes (Disabling, Other)
  Sender: REGENERON
  Company Number: US-REGENERON PHARMACEUTICALS, INC.-2024-085460

PATIENT
  Sex: Female

DRUGS (1)
  1. EYLEA [Suspect]
     Active Substance: AFLIBERCEPT
     Indication: Retinal vein occlusion
     Dosage: 2 MG, EVERY 4-6 WEEKS INTO LEFT EYE (FORMULATION: PFS UNKNOWN, STRENGTH: 2MG/0.05CC OR 40MG/ML)
     Dates: start: 20211018

REACTIONS (3)
  - Blindness unilateral [Not Recovered/Not Resolved]
  - Uveitis [Recovering/Resolving]
  - Vitritis [Not Recovered/Not Resolved]

NARRATIVE: CASE EVENT DATE: 20240610
